FAERS Safety Report 5411732-0 (Version None)
Quarter: 2007Q3

REPORT INFORMATION
  Report Type: 
  Country: None (occurrence: None)
  Receive Date: 20070813
  Receipt Date: 20070801
  Transmission Date: 20080115
  Serious: Yes (Other)
  Sender: FDA-Public Use
  Company Number: PHHO2007IE12667

PATIENT
  Age: 63 Year
  Sex: Female
  Weight: 69.3 kg

DRUGS (9)
  1. ZOLEDRONIC ACID [Suspect]
     Indication: METASTASES TO BONE
     Dosage: 4 MG, UNK
     Route: 042
     Dates: start: 20050322, end: 20061122
  2. ZOLEDRONIC ACID [Suspect]
     Dosage: NO TREATMENT
     Dates: start: 20061123
  3. ZOMETA [Suspect]
     Indication: METASTASES TO BONE
     Dosage: UNK, NO TREATMENT
  4. ZOMETA [Suspect]
     Dosage: 4 MG, Q3MO
     Route: 042
     Dates: start: 20070524, end: 20070710
  5. PACLITAXEL [Concomitant]
     Indication: METASTASIS
     Dosage: 156 MG, WEEKLY
     Route: 042
     Dates: start: 20070606
  6. BEVACIZUMAB [Concomitant]
     Indication: METASTASIS
     Dosage: 700 MG, 2 WEEKLY
     Dates: start: 20070606
  7. DEXAMETHASONE 0.5MG TAB [Concomitant]
     Dosage: 10 MG, WEEKLY
     Route: 042
  8. RANITIDINE [Concomitant]
     Dosage: 50 MG, WEEKLY
     Route: 042
  9. CHLORPHENIRAMINE MALEATE [Concomitant]
     Dosage: 10 MG, WEEKLY
     Route: 042

REACTIONS (3)
  - JAW DISORDER [None]
  - OSTEONECROSIS [None]
  - PAIN IN JAW [None]
